FAERS Safety Report 14958808 (Version 1)
Quarter: 2018Q2

REPORT INFORMATION
  Report Type: Spontaneous
  Country: US (occurrence: US)
  Receive Date: 20180531
  Receipt Date: 20180531
  Transmission Date: 20180711
  Serious: No
  Sender: FDA-Public Use
  Company Number: US-GLAXOSMITHKLINE-US2018090633

PATIENT
  Sex: Female

DRUGS (11)
  1. GABAPENTIN. [Concomitant]
     Active Substance: GABAPENTIN
  2. METFORMIN [Concomitant]
     Active Substance: METFORMIN HYDROCHLORIDE
  3. BENLYSTA [Suspect]
     Active Substance: BELIMUMAB
     Indication: SYSTEMIC LUPUS ERYTHEMATOSUS
     Dosage: UNK
     Route: 042
     Dates: start: 2012, end: 20180309
  4. BENLYSTA [Suspect]
     Active Substance: BELIMUMAB
     Indication: SYSTEMIC LUPUS ERYTHEMATOSUS
     Dosage: 200 MG, UNK
     Route: 058
  5. MYRBETRIQ [Concomitant]
     Active Substance: MIRABEGRON
  6. AMLODIPINE [Concomitant]
     Active Substance: AMLODIPINE BESYLATE
  7. MELOXICAM. [Concomitant]
     Active Substance: MELOXICAM
  8. METOPROLOL. [Concomitant]
     Active Substance: METOPROLOL
  9. LEVOTHYROXINE. [Concomitant]
     Active Substance: LEVOTHYROXINE
  10. ESTRADIOL. [Concomitant]
     Active Substance: ESTRADIOL
  11. HYDROXYCHLOROQUINE [Concomitant]
     Active Substance: HYDROXYCHLOROQUINE

REACTIONS (6)
  - Vein disorder [Unknown]
  - Complication associated with device [Not Recovered/Not Resolved]
  - Wrong technique in device usage process [Unknown]
  - Injection site rash [Recovered/Resolved]
  - Injection site bruising [Recovered/Resolved]
  - Nervousness [Unknown]
